FAERS Safety Report 19793926 (Version 2)
Quarter: 2021Q4

REPORT INFORMATION
  Report Type: Other
  Country: US (occurrence: US)
  Receive Date: 20210906
  Receipt Date: 20211007
  Transmission Date: 20220303
  Serious: Yes (Hospitalization)
  Sender: FDA-Public Use
  Company Number: US-ROCHE-2886899

PATIENT
  Age: 81 Year
  Sex: Female
  Weight: 85.81 kg

DRUGS (6)
  1. ACTEMRA [Suspect]
     Active Substance: TOCILIZUMAB
     Indication: Giant cell arteritis
     Dosage: 162MG/0.9ML SELF-ADMINISTERED WEEKLY EVERY SUNDAY
     Route: 058
     Dates: start: 201910
  2. ACTEMRA [Suspect]
     Active Substance: TOCILIZUMAB
  3. ACTEMRA [Suspect]
     Active Substance: TOCILIZUMAB
  4. ACTEMRA [Suspect]
     Active Substance: TOCILIZUMAB
     Indication: Essential hypertension
  5. ACTEMRA [Suspect]
     Active Substance: TOCILIZUMAB
  6. ACTEMRA [Suspect]
     Active Substance: TOCILIZUMAB

REACTIONS (7)
  - Cardiac failure congestive [Recovering/Resolving]
  - Asthma [Recovering/Resolving]
  - Asthenia [Not Recovered/Not Resolved]
  - Pancreatitis [Unknown]
  - General physical health deterioration [Unknown]
  - Abdominal pain [Unknown]
  - Pulmonary pain [Unknown]

NARRATIVE: CASE EVENT DATE: 20210802
